FAERS Safety Report 12715149 (Version 2)
Quarter: 2016Q4

REPORT INFORMATION
  Report Type: Spontaneous
  Country: US (occurrence: US)
  Receive Date: 20160905
  Receipt Date: 20161010
  Transmission Date: 20170207
  Serious: Yes (Other)
  Sender: FDA-Public Use
  Company Number: PHEH2016US022411

PATIENT
  Sex: Male

DRUGS (1)
  1. JADENU [Suspect]
     Active Substance: DEFERASIROX
     Indication: PRODUCT USED FOR UNKNOWN INDICATION
     Dosage: 14 MG/KG, QD
     Route: 048
     Dates: start: 20160813, end: 20160924

REACTIONS (1)
  - Renal impairment [Recovered/Resolved]
